FAERS Safety Report 4414409-3 (Version None)
Quarter: 2004Q3

REPORT INFORMATION
  Report Type: 
  Country: None (occurrence: None)
  Receive Date: 20040701
  Receipt Date: 20031222
  Transmission Date: 20050211
  Serious: Yes (Death)
  Sender: FDA-Public Use
  Company Number: VISP-PR-0312S-0379(0)

PATIENT
  Age: 55 Year
  Sex: Male

DRUGS (2)
  1. VISIPAQUE [Suspect]
     Indication: ARTERIOVENOUS FISTULA OPERATION
     Dosage: 24 ML, SINGLE DOSE, I.A.
     Dates: start: 20031219, end: 20031219
  2. INSULIN [Concomitant]

REACTIONS (6)
  - DYSPNOEA [None]
  - ELECTROMECHANICAL DISSOCIATION [None]
  - HYPERTENSION [None]
  - HYPOGLYCAEMIA [None]
  - PANIC ATTACK [None]
  - TACHYCARDIA [None]
